FAERS Safety Report 21102354 (Version 1)
Quarter: 2022Q3

REPORT INFORMATION
  Report Type: Spontaneous
  Country: US (occurrence: US)
  Receive Date: 20220719
  Receipt Date: 20220719
  Transmission Date: 20221027
  Serious: No
  Sender: FDA-Public Use
  Company Number: US-NOVARTISTESTPH-NVSC2022US162428

PATIENT
  Sex: Female

DRUGS (2)
  1. RITALIN [Suspect]
     Active Substance: METHYLPHENIDATE HYDROCHLORIDE
     Indication: Product used for unknown indication
     Dosage: UNK
     Route: 048
  2. IRON [Suspect]
     Active Substance: IRON
     Indication: Blood iron decreased
     Dosage: UNK
     Route: 065

REACTIONS (13)
  - Abdominal discomfort [Unknown]
  - Incontinence [Unknown]
  - Blood iron decreased [Unknown]
  - Vitamin D decreased [Unknown]
  - Eczema [Unknown]
  - Thyroid disorder [Unknown]
  - Dysphagia [Unknown]
  - Psychomotor hyperactivity [Unknown]
  - Irritability [Unknown]
  - Abdominal pain upper [Unknown]
  - Insomnia [Unknown]
  - Constipation [Unknown]
  - Therapeutic response changed [Unknown]
